FAERS Safety Report 15717988 (Version 1)
Quarter: 2018Q4

REPORT INFORMATION
  Report Type: Report from Study
  Country: CN (occurrence: CN)
  Receive Date: 20181213
  Receipt Date: 20181213
  Transmission Date: 20190205
  Serious: Yes (Other)
  Sender: FDA-Public Use
  Company Number: CN-ROCHE-1133670

PATIENT

DRUGS (9)
  1. CISPLATIN. [Suspect]
     Active Substance: CISPLATIN
     Indication: GASTROINTESTINAL CARCINOMA
     Route: 065
  2. 5-FLUOROURACIL [Suspect]
     Active Substance: FLUOROURACIL
     Indication: GASTROINTESTINAL CARCINOMA
     Route: 065
  3. CAPECITABINE. [Suspect]
     Active Substance: CAPECITABINE
     Indication: GASTROINTESTINAL CARCINOMA
     Route: 065
  4. BEVACIZUMAB. [Suspect]
     Active Substance: BEVACIZUMAB
     Indication: GASTROINTESTINAL CARCINOMA
     Route: 065
  5. OXALIPLATIN. [Suspect]
     Active Substance: OXALIPLATIN
     Indication: GASTROINTESTINAL CARCINOMA
     Route: 065
  6. LEUCOVORIN. [Suspect]
     Active Substance: LEUCOVORIN
     Indication: GASTROINTESTINAL CARCINOMA
     Route: 065
  7. IRINOTECAN [Suspect]
     Active Substance: IRINOTECAN
     Indication: GASTROINTESTINAL CARCINOMA
     Route: 065
  8. PACLITAXEL. [Suspect]
     Active Substance: PACLITAXEL
     Indication: GASTROINTESTINAL CARCINOMA
     Route: 065
  9. TEGAFUR [Suspect]
     Active Substance: TEGAFUR
     Indication: GASTROINTESTINAL CARCINOMA
     Route: 065

REACTIONS (22)
  - Bone marrow failure [Unknown]
  - Angina pectoris [Unknown]
  - Haematotoxicity [Unknown]
  - Neuropathy peripheral [Unknown]
  - Pyrexia [Unknown]
  - Fatigue [Unknown]
  - Cerebrovascular accident [Unknown]
  - Impaired healing [Unknown]
  - Hepatic function abnormal [Unknown]
  - Hypertension [Unknown]
  - Proteinuria [Unknown]
  - Haemorrhage [Unknown]
  - Constipation [Unknown]
  - Palmar-plantar erythrodysaesthesia syndrome [Unknown]
  - Intestinal obstruction [Unknown]
  - Decreased appetite [Unknown]
  - Impaired gastric emptying [Unknown]
  - Diarrhoea [Unknown]
  - Hypersensitivity [Unknown]
  - Nausea [Unknown]
  - Vomiting [Unknown]
  - Stomatitis [Unknown]
